FAERS Safety Report 7732346-3 (Version None)
Quarter: 2011Q3

REPORT INFORMATION
  Report Type: 
  Country: None (occurrence: None)
  Receive Date: 20110906
  Receipt Date: 20110822
  Transmission Date: 20111222
  Serious: Yes (Death, Hospitalization)
  Sender: FDA-Public Use
  Company Number: DE-BRISTOL-MYERS SQUIBB COMPANY-15991912

PATIENT
  Age: 56 Year
  Sex: Female

DRUGS (4)
  1. CARBOPLATIN [Suspect]
     Indication: NON-SMALL CELL LUNG CANCER METASTATIC
     Dosage: 1DF= AUC 5
     Route: 042
  2. VITAMIN B-12 [Concomitant]
  3. PEMETREXED DISODIUM [Suspect]
     Indication: NON-SMALL CELL LUNG CANCER METASTATIC
  4. FOLIC ACID [Concomitant]
     Indication: PREMEDICATION

REACTIONS (8)
  - PAIN [None]
  - ENTEROCOLITIS [None]
  - DEHYDRATION [None]
  - PANCYTOPENIA [None]
  - ASPERGILLOSIS [None]
  - SEPSIS [None]
  - GASTRITIS EROSIVE [None]
  - PSEUDOMONAS INFECTION [None]
